FAERS Safety Report 7804868-8 (Version None)
Quarter: 2011Q4

REPORT INFORMATION
  Report Type: 
  Country: None (occurrence: None)
  Receive Date: 20111010
  Receipt Date: 20110929
  Transmission Date: 20120403
  Serious: Yes (Other)
  Sender: FDA-Public Use
  Company Number: JP-MERCK-1105USA01566

PATIENT
  Age: 42 Year
  Sex: Female

DRUGS (4)
  1. JANUVIA [Suspect]
     Indication: TYPE 2 DIABETES MELLITUS
     Route: 048
     Dates: start: 20100415, end: 20110211
  2. AMARYL [Concomitant]
     Route: 065
     Dates: start: 20110120, end: 20110211
  3. PROPYLTHIOURACIL [Concomitant]
     Route: 065
     Dates: start: 20100709
  4. PROPYLTHIOURACIL [Concomitant]
     Route: 065
     Dates: start: 20090730, end: 20100708

REACTIONS (2)
  - ANTI-GAD ANTIBODY POSITIVE [None]
  - BLOOD INSULIN DECREASED [None]
